FAERS Safety Report 9475503 (Version 4)
Quarter: 2014Q1

REPORT INFORMATION
  Report Type: Spontaneous
  Country: DE (occurrence: DE)
  Receive Date: 20130826
  Receipt Date: 20140117
  Transmission Date: 20141002
  Serious: Yes (Death, Hospitalization)
  Sender: FDA-Public Use
  Company Number: DE-BRISTOL-MYERS SQUIBB COMPANY-19215219

PATIENT
  Age: 75 Year
  Sex: Male
  Weight: 114 kg

DRUGS (5)
  1. ELIQUIS [Suspect]
     Indication: ATRIAL FIBRILLATION
     Route: 048
     Dates: start: 20130615, end: 20130712
  2. ATORVASTATIN [Concomitant]
  3. METFORMIN [Concomitant]
  4. METOPROLOL [Concomitant]
  5. FUROSEMIDE [Concomitant]

REACTIONS (7)
  - Cardiac failure [Fatal]
  - Respiratory failure [Fatal]
  - Pulmonary oedema [Fatal]
  - Hypernatraemia [Unknown]
  - Hallucination [Unknown]
  - Feeling cold [Unknown]
  - Dyspnoea [Unknown]
